FAERS Safety Report 14925459 (Version 2)
Quarter: 2018Q3

REPORT INFORMATION
  Report Type: Report from Study
  Country: US (occurrence: US)
  Receive Date: 20180522
  Receipt Date: 20180705
  Transmission Date: 20181010
  Serious: Yes (Other)
  Sender: FDA-Public Use
  Company Number: PHEH2018US018925

PATIENT
  Sex: Female

DRUGS (1)
  1. COSENTYX [Suspect]
     Active Substance: SECUKINUMAB
     Indication: ANKYLOSING SPONDYLITIS
     Dosage: 150 MG, QW
     Route: 058

REACTIONS (6)
  - Pain [Recovered/Resolved]
  - Skin disorder [Unknown]
  - Arrhythmia [Unknown]
  - Supraventricular extrasystoles [Unknown]
  - Palpitations [Unknown]
  - Fatigue [Unknown]
